FAERS Safety Report 19650288 (Version 1)
Quarter: 2021Q3

REPORT INFORMATION
  Report Type: Spontaneous
  Country: US (occurrence: US)
  Receive Date: 20210802
  Receipt Date: 20210802
  Transmission Date: 20211014
  Serious: No
  Sender: FDA-Public Use
  Company Number: None

PATIENT
  Age: 71 Year
  Sex: Female
  Weight: 95.4 kg

DRUGS (2)
  1. ALEVE [Concomitant]
     Active Substance: NAPROXEN SODIUM
  2. OXYBUTYNIN 5 MG TAB [Suspect]
     Active Substance: OXYBUTYNIN
     Indication: HOT FLUSH
     Dosage: ?          QUANTITY:1 TABLET(S);?
     Route: 048
     Dates: start: 20210727, end: 20210730

REACTIONS (6)
  - Diarrhoea [None]
  - Dry mouth [None]
  - Dizziness [None]
  - Asthenia [None]
  - Headache [None]
  - Abdominal discomfort [None]

NARRATIVE: CASE EVENT DATE: 20210730
